FAERS Safety Report 9601126 (Version 2)
Quarter: 2013Q4

REPORT INFORMATION
  Report Type: Spontaneous
  Country: US (occurrence: US)
  Receive Date: 20131004
  Receipt Date: 20131004
  Transmission Date: 20140711
  Serious: Yes (Other)
  Sender: FDA-Public Use
  Company Number: US-AMGEN-USASP2013032718

PATIENT
  Age: 57 Year
  Sex: Male
  Weight: 81.63 kg

DRUGS (8)
  1. ENBREL [Suspect]
     Indication: PSORIASIS
     Dosage: 50 MG, QWK
     Route: 058
     Dates: start: 20121130
  2. METHOTREXATE [Concomitant]
     Dosage: 7.5 MG, QWK
     Dates: start: 2012, end: 2013
  3. CETRIZINE [Concomitant]
     Indication: RHINITIS
     Dosage: 10 MG, QD
     Route: 048
     Dates: start: 20130509
  4. LEVOTHYROXINE [Concomitant]
     Indication: THYROID DISORDER
     Dosage: UNK
     Route: 048
  5. LISINOPRIL [Concomitant]
     Indication: HYPERTENSION
     Dosage: UNK
     Route: 048
  6. METOPROLOL [Concomitant]
     Indication: HYPERTENSION
     Dosage: UNK
     Route: 048
  7. FLUTICASON [Concomitant]
     Indication: RHINITIS
     Dosage: 50 MUG, BID
  8. OMEPRAZOLE [Concomitant]
     Indication: GASTROOESOPHAGEAL REFLUX DISEASE
     Dosage: 20 MG, QD
     Route: 048

REACTIONS (3)
  - Lung infection [Not Recovered/Not Resolved]
  - Bronchitis [Recovered/Resolved]
  - Infection [Unknown]
